FAERS Safety Report 9355985 (Version 1)
Quarter: 2013Q2

REPORT INFORMATION
  Report Type: Spontaneous
  Country: FR (occurrence: FR)
  Receive Date: 20130619
  Receipt Date: 20130619
  Transmission Date: 20140414
  Serious: Yes (Hospitalization, Disabling)
  Sender: FDA-Public Use
  Company Number: FR-MYLANLABS-2013S1012629

PATIENT
  Age: 58 Year
  Sex: Male

DRUGS (3)
  1. BACLOFEN [Suspect]
     Indication: ALCOHOL USE
     Dosage: 10 MG/DAY
     Route: 065
     Dates: start: 201207
  2. BACLOFEN [Suspect]
     Indication: ALCOHOL USE
     Dosage: 200 MG/DAY
     Route: 065
     Dates: start: 201207
  3. BOTULINUM TOXIN [Concomitant]
     Indication: PARESIS
     Dosage: ABOUT TWICE A YEAR
     Route: 065

REACTIONS (2)
  - Paralysis flaccid [Recovered/Resolved]
  - Prescribed overdose [Recovered/Resolved]
